FAERS Safety Report 10262295 (Version 1)
Quarter: 2014Q2

REPORT INFORMATION
  Report Type: Spontaneous
  Country: AU (occurrence: AU)
  Receive Date: 20140626
  Receipt Date: 20140626
  Transmission Date: 20141212
  Serious: Yes (Life-Threatening)
  Sender: FDA-Public Use
  Company Number: AU-ASTRAZENECA-2014SE45867

PATIENT
  Age: 77 Year
  Sex: Male
  Weight: 85 kg

DRUGS (5)
  1. CRESTOR [Suspect]
     Route: 048
  2. DILTIAZEM HYDROCHLORIDE [Suspect]
     Route: 065
  3. LANSOPRAZOLE [Suspect]
     Route: 065
  4. PRADAXA [Suspect]
     Route: 065
     Dates: end: 20140428
  5. SERETIDE MDI [Suspect]
     Dosage: 250/25, UNKNOWN
     Route: 065

REACTIONS (3)
  - Dyspnoea [Not Recovered/Not Resolved]
  - Hypoxia [Not Recovered/Not Resolved]
  - Pulmonary fibrosis [Not Recovered/Not Resolved]
